FAERS Safety Report 8645184 (Version 2)
Quarter: 2012Q4

REPORT INFORMATION
  Report Type: 
  Country: PH (occurrence: PH)
  Receive Date: 20120702
  Receipt Date: 20121126
  Transmission Date: 20130627
  Serious: Yes (Death)
  Sender: FDA-Public Use
  Company Number: PH-CELGENEUS-128-21880-12063417

PATIENT
  Sex: Female
  Weight: 56 kg

DRUGS (2)
  1. REVLIMID [Suspect]
     Indication: PLASMA CELL LEUKEMIA
     Dosage: 15 Milligram
     Route: 048
     Dates: end: 201203
  2. VIDAZA [Suspect]
     Indication: ACUTE MYELOID LEUKEMIA
     Dosage: 100 Milligram
     Route: 041
     Dates: start: 201201, end: 201201

REACTIONS (2)
  - Acute myeloid leukaemia [Fatal]
  - Plasma cell leukaemia [Fatal]
